FAERS Safety Report 15391818 (Version 1)
Quarter: 2018Q3

REPORT INFORMATION
  Report Type: Spontaneous
  Country: GB (occurrence: GB)
  Receive Date: 20180917
  Receipt Date: 20180917
  Transmission Date: 20181010
  Serious: Yes (Hospitalization)
  Sender: FDA-Public Use
  Company Number: GB-PFIZER INC-2018365733

PATIENT
  Age: 61 Year
  Sex: Female
  Weight: 64 kg

DRUGS (10)
  1. ROSUVASTATIN CALCIUM. [Concomitant]
     Active Substance: ROSUVASTATIN CALCIUM
  2. SITAGLIPTIN [Concomitant]
     Active Substance: SITAGLIPTIN
  3. ACETYLSALICYLIC ACID [Concomitant]
     Active Substance: ASPIRIN
  4. OMEPRAZOLE. [Concomitant]
     Active Substance: OMEPRAZOLE
  5. LEVETIRACETAM. [Suspect]
     Active Substance: LEVETIRACETAM
     Indication: SEIZURE
     Dosage: 1000 MG, 1X/DAY
     Route: 048
  6. DEXAMETHASONE SODIUM PHOSPHATE. [Concomitant]
     Active Substance: DEXAMETHASONE SODIUM PHOSPHATE
  7. SYMBICORT [Concomitant]
     Active Substance: BUDESONIDE\FORMOTEROL FUMARATE DIHYDRATE
  8. GLICLAZIDE [Concomitant]
     Active Substance: GLICLAZIDE
  9. SALBUTAMOL [Concomitant]
     Active Substance: ALBUTEROL
  10. METFORMIN HYDROCHLORIDE. [Concomitant]
     Active Substance: METFORMIN HYDROCHLORIDE

REACTIONS (1)
  - Pneumonitis [Recovering/Resolving]
